FAERS Safety Report 5456401-6 (Version None)
Quarter: 2007Q3

REPORT INFORMATION
  Report Type: 
  Country: None (occurrence: None)
  Receive Date: 20070918
  Receipt Date: 20070904
  Transmission Date: 20080115
  Serious: Yes (Hospitalization)
  Sender: FDA-Public Use
  Company Number: SE-ELI_LILLY_AND_COMPANY-SE200708001285

PATIENT
  Age: 70 Year
  Sex: Male

DRUGS (7)
  1. GEMZAR [Suspect]
     Dosage: DAY 1, 8 AND 15 IN FOUR WEEK CYCLE
     Route: 065
     Dates: start: 20061130, end: 20070525
  2. ALVEDON [Concomitant]
     Dosage: 500 MG, UNKNOWN
     Route: 048
  3. METOPROLOL TARTRATE [Concomitant]
     Dosage: UNK, UNKNOWN
     Route: 065
  4. COZAAR [Concomitant]
     Dosage: 50 MG, UNKNOWN
     Route: 048
  5. BEHEPAN [Concomitant]
     Dosage: 1 MG, UNKNOWN
     Route: 048
  6. FURIX [Concomitant]
     Indication: WEIGHT CONTROL
     Dosage: 40 MG, UNKNOWN
     Route: 042
  7. FRAGMIN [Concomitant]
     Dosage: 18000 IU, UNKNOWN
     Route: 065

REACTIONS (2)
  - OEDEMA [None]
  - WEIGHT INCREASED [None]
